FAERS Safety Report 7463359-7 (Version None)
Quarter: 2011Q2

REPORT INFORMATION
  Report Type: 
  Country: None (occurrence: None)
  Receive Date: 20110506
  Receipt Date: 20110429
  Transmission Date: 20111010
  Serious: Yes (Hospitalization)
  Sender: FDA-Public Use
  Company Number: A0840335A

PATIENT
  Age: 50 Year
  Sex: Male
  Weight: 96.4 kg

DRUGS (15)
  1. BIAXIN [Concomitant]
  2. COZAAR [Concomitant]
  3. AMARYL [Concomitant]
  4. AVANDIA [Suspect]
     Indication: DIABETES MELLITUS
     Route: 048
  5. ATROVENT [Concomitant]
  6. AMIODARONE [Concomitant]
  7. ZOCOR [Concomitant]
  8. PLAVIX [Concomitant]
  9. COUMADIN [Concomitant]
  10. LASIX [Concomitant]
  11. K-DUR [Concomitant]
  12. LANTUS [Concomitant]
  13. ASPIRIN [Concomitant]
  14. PREVACID [Concomitant]
  15. FLOMAX [Concomitant]

REACTIONS (5)
  - ISCHAEMIC CARDIOMYOPATHY [None]
  - CARDIAC FAILURE CONGESTIVE [None]
  - ATRIAL FIBRILLATION [None]
  - MYOCARDIAL INFARCTION [None]
  - MITRAL VALVE INCOMPETENCE [None]
